FAERS Safety Report 21407929 (Version 1)
Quarter: 2022Q4

REPORT INFORMATION
  Report Type: Spontaneous
  Country: CN (occurrence: CN)
  Receive Date: 20221004
  Receipt Date: 20221004
  Transmission Date: 20230113
  Serious: Yes (Other)
  Sender: FDA-Public Use
  Company Number: None

PATIENT
  Age: 64 Year
  Sex: Female
  Weight: 55 kg

DRUGS (4)
  1. CYCLOPHOSPHAMIDE [Suspect]
     Active Substance: CYCLOPHOSPHAMIDE
     Indication: Breast cancer female
     Dosage: 900 MG QD, POWDER INJECTION DILUTED WITH 0.9% SODIUM CHLORIDE INJECTION (50ML), AT 10:34
     Route: 041
     Dates: start: 20220913, end: 20220913
  2. SODIUM CHLORIDE [Suspect]
     Active Substance: SODIUM CHLORIDE
     Indication: Medication dilution
     Dosage: 50 ML QD, INJECTION DILUTED IN CYCLOPHOSPHAMIDE 900 MG AT 10:34
     Route: 041
     Dates: start: 20220913, end: 20220913
  3. SODIUM CHLORIDE [Suspect]
     Active Substance: SODIUM CHLORIDE
     Dosage: 250 ML QD, INJECTION DILUTED IN DOCETAXEL 120 MG AT 11:03
     Route: 041
     Dates: start: 20220913, end: 20220913
  4. DOCETAXEL [Suspect]
     Active Substance: DOCETAXEL
     Indication: Breast cancer female
     Dosage: 120 MG QD, DILUTED WITH 0.9% SODIUM CHLORIDE INJECTION (250ML) AT11:03
     Route: 041
     Dates: start: 20220913, end: 20220913

REACTIONS (3)
  - White blood cell count decreased [Recovered/Resolved]
  - Asthenia [Recovered/Resolved]
  - Fatigue [Unknown]

NARRATIVE: CASE EVENT DATE: 20220918
